FAERS Safety Report 5233438-3 (Version None)
Quarter: 2007Q1

REPORT INFORMATION
  Report Type: 
  Country: None (occurrence: None)
  Receive Date: 20070208
  Receipt Date: 20070129
  Transmission Date: 20070707
  Serious: Yes (Hospitalization)
  Sender: FDA-Public Use
  Company Number: GB-NOVOPROD-259211

PATIENT
  Sex: Female
  Weight: 87.9 kg

DRUGS (5)
  1. NOVORAPID [Suspect]
     Indication: INSULIN-REQUIRING TYPE II DIABETES MELLITUS
     Dosage: 30 IU, QD
     Route: 058
     Dates: start: 20050719
  2. LEVEMIR [Suspect]
     Indication: INSULIN-REQUIRING TYPE II DIABETES MELLITUS
     Dosage: 44 IU, QD
     Route: 058
     Dates: start: 20050719
  3. PERINDOPRIL ERBUMINE [Concomitant]
     Dosage: 4 MG, QD
     Route: 048
  4. SIMVASTATIN [Concomitant]
     Dosage: 40 MG, QD
     Route: 048
  5. ASPIRIN [Concomitant]
     Dosage: 75 MG, QD
     Route: 048

REACTIONS (2)
  - FALL [None]
  - FEMORAL NECK FRACTURE [None]
